FAERS Safety Report 4458239-5 (Version None)
Quarter: 2004Q3

REPORT INFORMATION
  Report Type: 
  Country: None (occurrence: None)
  Receive Date: 20040917
  Receipt Date: 20040305
  Transmission Date: 20050211
  Serious: Yes (Other)
  Sender: FDA-Public Use
  Company Number: US-JNJFOC-20040301666

PATIENT
  Age: 47 Year
  Sex: Female
  Weight: 69.8539 kg

DRUGS (4)
  1. TOPAMAX [Suspect]
     Indication: AFFECTIVE DISORDER
     Dosage: 100 MG, ORAL
     Route: 048
     Dates: start: 20020101
  2. SEROQUEL [Concomitant]
  3. EFFEXOR [Concomitant]
  4. GEODON [Concomitant]

REACTIONS (1)
  - HEPATITIS C [None]
